FAERS Safety Report 8492248-4 (Version None)
Quarter: 2012Q3

REPORT INFORMATION
  Report Type: 
  Country: None (occurrence: None)
  Receive Date: 20120706
  Receipt Date: 20120629
  Transmission Date: 20120928
  Serious: Yes (Other)
  Sender: FDA-Public Use
  Company Number: AU-ROCHE-1083914

PATIENT
  Sex: Male

DRUGS (2)
  1. LUCENTIS [Suspect]
     Indication: AGE-RELATED MACULAR DEGENERATION
     Route: 050
     Dates: start: 20080101
  2. FOSAMAX [Concomitant]
     Indication: OSTEITIS DEFORMANS
     Dates: start: 20120501

REACTIONS (4)
  - WEIGHT DECREASED [None]
  - CHEST PAIN [None]
  - FLUID RETENTION [None]
  - THROAT IRRITATION [None]
